FAERS Safety Report 5056851-6 (Version None)
Quarter: 2006Q3

REPORT INFORMATION
  Report Type: 
  Country: None (occurrence: None)
  Receive Date: 20060721
  Receipt Date: 20060713
  Transmission Date: 20061208
  Serious: Yes (Hospitalization, Other)
  Sender: FDA-Public Use
  Company Number: LB-ABBOTT-06P-093-0338065-00

PATIENT
  Age: 35 Year
  Sex: Male

DRUGS (2)
  1. HUMIRA [Suspect]
     Indication: DRUG USE FOR UNKNOWN INDICATION
  2. METHOTREXATE [Concomitant]
     Indication: DRUG USE FOR UNKNOWN INDICATION

REACTIONS (13)
  - ANURIA [None]
  - DIARRHOEA [None]
  - DUODENAL ULCER [None]
  - DUODENITIS [None]
  - EPIDIDYMITIS [None]
  - GASTROENTERITIS [None]
  - HAEMATEMESIS [None]
  - HEPATOMEGALY [None]
  - MICROLITHIASIS [None]
  - PANCREATITIS [None]
  - PURPURA [None]
  - SKIN REACTION [None]
  - VASCULITIS [None]
